FAERS Safety Report 9970321 (Version 1)
Quarter: 2014Q1

REPORT INFORMATION
  Report Type: Spontaneous
  Country: US (occurrence: None)
  Receive Date: 20140305
  Receipt Date: 20140305
  Transmission Date: 20141002
  Serious: Yes (Other)
  Sender: FDA-Public Use
  Company Number: None

PATIENT
  Age: 26 Year
  Sex: Female
  Weight: 88 kg

DRUGS (1)
  1. INSULIN [Suspect]

REACTIONS (5)
  - Blood glucose increased [None]
  - Malaise [None]
  - Incorrect dose administered by device [None]
  - Blood glucose decreased [None]
  - Device failure [None]
